FAERS Safety Report 7508135 (Version 2)
Quarter: 2017Q3

REPORT INFORMATION
  Report Type: Spontaneous
  Country: US (occurrence: US)
  Receive Date: 20100727
  Receipt Date: 20170926
  Transmission Date: 20171128
  Serious: Yes (Death, Other)
  Sender: FDA-Public Use
  Company Number: US-PFIZER INC-2007033774

PATIENT
  Age: 57 Year
  Sex: Female
  Weight: 127 kg

DRUGS (5)
  1. CELEBREX [Suspect]
     Active Substance: CELECOXIB
     Dosage: UNK
     Route: 048
     Dates: start: 19990924, end: 19991101
  2. VIOXX [Suspect]
     Active Substance: ROFECOXIB
     Indication: ARTHRITIS
     Dosage: 12.5 MG, 1X/DAY
     Route: 048
     Dates: start: 19990824
  3. HYZAAR [Concomitant]
     Active Substance: HYDROCHLOROTHIAZIDE\LOSARTAN POTASSIUM
     Dosage: UNK
     Dates: start: 200001, end: 20000130
  4. CELEBREX [Suspect]
     Active Substance: CELECOXIB
     Indication: ARTHRITIS
     Dosage: 200 MG, 1X/DAY
     Route: 048
     Dates: start: 19990922, end: 200001
  5. VIOXX [Suspect]
     Active Substance: ROFECOXIB
     Dosage: 25 MG, 1X/DAY
     Route: 048
     Dates: end: 20000129

REACTIONS (1)
  - Cerebrovascular accident [Fatal]

NARRATIVE: CASE EVENT DATE: 20000130
